FAERS Safety Report 8823288 (Version 3)
Quarter: 2013Q2

REPORT INFORMATION
  Report Type: Spontaneous
  Country: US (occurrence: US)
  Receive Date: 20121003
  Receipt Date: 20130426
  Transmission Date: 20140414
  Serious: Yes (Other)
  Sender: FDA-Public Use
  Company Number: US-US-EMD SERONO, INC.-7164126

PATIENT
  Sex: Female
  Weight: 70 kg

DRUGS (4)
  1. REBIF [Suspect]
     Indication: PROGRESSIVE MULTIPLE SCLEROSIS
     Route: 058
     Dates: start: 20040429, end: 2011
  2. REBIF [Suspect]
     Route: 058
     Dates: start: 2011
  3. SOLU-MEDROL [Concomitant]
     Indication: PRODUCT USED FOR UNKNOWN INDICATION
     Dates: start: 2005
  4. LYRICA [Concomitant]
     Indication: FEELING ABNORMAL

REACTIONS (10)
  - Myocardial haemorrhage [Unknown]
  - Peroneal nerve palsy [Unknown]
  - Bladder prolapse [Not Recovered/Not Resolved]
  - Bladder disorder [Not Recovered/Not Resolved]
  - Injection site discolouration [Not Recovered/Not Resolved]
  - Social avoidant behaviour [Unknown]
  - Tearfulness [Unknown]
  - Injection site ulcer [Unknown]
  - Pain in extremity [Not Recovered/Not Resolved]
  - Multiple sclerosis [Not Recovered/Not Resolved]
